FAERS Safety Report 4498671-7 (Version None)
Quarter: 2004Q4

REPORT INFORMATION
  Report Type: 
  Country: None (occurrence: None)
  Receive Date: 20041111
  Receipt Date: 20041101
  Transmission Date: 20050328
  Serious: Yes (Life-Threatening)
  Sender: FDA-Public Use
  Company Number: GB-ABBOTT-04P-167-0279642-00

PATIENT
  Age: 32 Year
  Sex: Female
  Weight: 115.3 kg

DRUGS (2)
  1. REDUCTIL 15MG [Suspect]
     Indication: WEIGHT INCREASED
     Route: 048
     Dates: start: 20040921, end: 20040923
  2. REDUCTIL 15MG [Suspect]
     Route: 048
     Dates: start: 20040824, end: 20040920

REACTIONS (1)
  - SUPERIOR SAGITTAL SINUS THROMBOSIS [None]
